FAERS Safety Report 9181425 (Version 3)
Quarter: 2013Q2

REPORT INFORMATION
  Report Type: Spontaneous
  Country: US (occurrence: US)
  Receive Date: 20130322
  Receipt Date: 20130506
  Transmission Date: 20140414
  Serious: Yes (Other)
  Sender: FDA-Public Use
  Company Number: US-BAYER-2013-035646

PATIENT
  Age: 30 Year
  Sex: Female
  Weight: 113.38 kg

DRUGS (1)
  1. MIRENA [Suspect]
     Indication: CONTRACEPTION
     Dosage: 20 MCG/24HR, CONT
     Route: 015
     Dates: start: 20121030, end: 20130329

REACTIONS (9)
  - Post procedural haemorrhage [Recovered/Resolved]
  - Abdominal pain lower [Recovered/Resolved]
  - Device misuse [None]
  - Vaginal discharge [None]
  - Dysmenorrhoea [None]
  - Irritability [None]
  - Crying [None]
  - Mood altered [None]
  - Abdominal distension [None]
